FAERS Safety Report 12573730 (Version 11)
Quarter: 2017Q4

REPORT INFORMATION
  Report Type: Spontaneous
  Country: US (occurrence: US)
  Receive Date: 20160720
  Receipt Date: 20171228
  Transmission Date: 20180320
  Serious: Yes (Other)
  Sender: FDA-Public Use
  Company Number: US-PFIZER INC-2016344812

PATIENT
  Age: 73 Year
  Sex: Female
  Weight: 61.22 kg

DRUGS (16)
  1. ZESTRIL [Concomitant]
     Active Substance: LISINOPRIL
     Dosage: 20 MG, 1X/DAY
     Dates: start: 20160217
  2. PRESERVISION AREDS [Concomitant]
     Active Substance: MINERALS\VITAMINS
     Dosage: UNK
     Route: 048
  3. GLUCOPHAGE [Concomitant]
     Active Substance: METFORMIN HYDROCHLORIDE
     Dosage: 500 MG, 2X/DAY (WITH MORNING AND EVENING MEALS)
     Dates: start: 20160217
  4. LYRICA [Suspect]
     Active Substance: PREGABALIN
     Indication: HERPES ZOSTER
     Dosage: 225 MG, DAILY, (TAKE 1 CAPSULE DAILY AND 2 CAPSULE AT NIGHT)
     Route: 048
     Dates: start: 20160712
  5. LYRICA [Suspect]
     Active Substance: PREGABALIN
     Dosage: 225 MG, DAILY, (TAKE 1 CAPSULE DAILY AND 2 CAPSULE AT NIGHT)
     Route: 048
     Dates: start: 20160906, end: 20161216
  6. LYRICA [Suspect]
     Active Substance: PREGABALIN
     Dosage: 225 MG, DAILY, (TAKE 1 CAPSULE DAILY AND 2 CAPSULE AT NIGHT)
     Route: 048
  7. LYRICA [Suspect]
     Active Substance: PREGABALIN
     Dosage: 75 MG, 1X/DAY
  8. PRINIVIL [Concomitant]
     Active Substance: LISINOPRIL
     Dosage: 20 MG, 1X/DAY
     Dates: start: 20160217
  9. LISINOPRIL. [Concomitant]
     Active Substance: LISINOPRIL
     Indication: HYPERTENSION
     Dosage: 25 MG, 1X/DAY (25MG IN THE MORNING)
  10. LYRICA [Suspect]
     Active Substance: PREGABALIN
     Dosage: 225 MG, DAILY, (TAKE 1 CAPSULE DAILY AND 2 CAPSULE AT NIGHT)
     Route: 048
     Dates: start: 20160727
  11. CALCIUM 500+D [Concomitant]
     Active Substance: CALCIUM\VITAMIN D
     Dosage: UNK
     Route: 048
  12. GYMNEMA SYLVESTRE/PECTIN [Concomitant]
     Indication: DIABETES MELLITUS
     Dosage: 500 MG, 2X/DAY (IN THE MORNING AND AT NIGHT)
  13. ZANTAC [Concomitant]
     Active Substance: RANITIDINE HYDROCHLORIDE
     Dosage: 300 MG, UNK
     Route: 048
  14. METFORMIN [Concomitant]
     Active Substance: METFORMIN HYDROCHLORIDE
     Indication: DIABETES MELLITUS
     Dosage: 500 MG, 2X/DAY (500MG IN THE MORNING AND AT NIGHT)
  15. ATIVAN [Concomitant]
     Active Substance: LORAZEPAM
     Dosage: 0.5 MG, UNK (1 HOUR PRIOR TO MRI, MAY REPEAT IN 30 MIN IF 1ST DOSE NOT EFFECTIVE)
     Route: 048
     Dates: start: 20160223
  16. NEURONTIN [Concomitant]
     Active Substance: GABAPENTIN
     Dosage: 300 MG, 3X/DAY
     Route: 048
     Dates: start: 20160531

REACTIONS (9)
  - Disease recurrence [Unknown]
  - Gait disturbance [Unknown]
  - Feeling hot [Unknown]
  - Eye pain [Not Recovered/Not Resolved]
  - Headache [Unknown]
  - Condition aggravated [Not Recovered/Not Resolved]
  - Intentional product use issue [Unknown]
  - Ophthalmic herpes zoster [Unknown]
  - Drug ineffective [Not Recovered/Not Resolved]
